FAERS Safety Report 7169925-0 (Version None)
Quarter: 2010Q4

REPORT INFORMATION
  Report Type: 
  Country: None (occurrence: None)
  Receive Date: 20101217
  Receipt Date: 20101214
  Transmission Date: 20110411
  Serious: Yes (Death)
  Sender: FDA-Public Use
  Company Number: JP-SANOFI-AVENTIS-2010SA072160

PATIENT
  Sex: Male

DRUGS (2)
  1. TAXOTERE [Suspect]
     Indication: PROSTATE CANCER
     Route: 041
     Dates: start: 20101015, end: 20101126
  2. PREDNISOLONE [Concomitant]
     Route: 065

REACTIONS (1)
  - PANCREATITIS ACUTE [None]
